FAERS Safety Report 13489005 (Version 1)
Quarter: 2017Q2

REPORT INFORMATION
  Report Type: Spontaneous
  Country: US (occurrence: US)
  Receive Date: 20170427
  Receipt Date: 20170427
  Transmission Date: 20170830
  Serious: No
  Sender: FDA-Public Use
  Company Number: US-MYLANLABS-2016M1033752

PATIENT
  Sex: Female

DRUGS (1)
  1. METHIMAZOLE. [Suspect]
     Active Substance: METHIMAZOLE
     Dosage: UNK

REACTIONS (5)
  - Goitre [Unknown]
  - Choking sensation [Unknown]
  - Local swelling [Unknown]
  - Dyspnoea [Unknown]
  - Erythema [Unknown]
